FAERS Safety Report 11330178 (Version 1)
Quarter: 2015Q3

REPORT INFORMATION
  Report Type: Report from Study
  Country: CA (occurrence: CA)
  Receive Date: 20150803
  Receipt Date: 20150803
  Transmission Date: 20151125
  Serious: Yes (Hospitalization)
  Sender: FDA-Public Use
  Company Number: CA-BIOGENIDEC-2015BI106201

PATIENT
  Age: 42 Year
  Sex: Female

DRUGS (2)
  1. IRON PILLS [Concomitant]
     Active Substance: IRON
     Indication: HAEMOGLOBIN DECREASED
  2. TECFIDERA [Suspect]
     Active Substance: DIMETHYL FUMARATE
     Indication: RELAPSING-REMITTING MULTIPLE SCLEROSIS
     Route: 048
     Dates: start: 20130731

REACTIONS (4)
  - Rectal haemorrhage [Unknown]
  - Haemoglobin decreased [Unknown]
  - Colitis [Unknown]
  - Diarrhoea [Unknown]
